FAERS Safety Report 5787837-1 (Version None)
Quarter: 2008Q2

REPORT INFORMATION
  Report Type: 
  Country: None (occurrence: None)
  Receive Date: 20080624
  Receipt Date: 20080624
  Transmission Date: 20081010
  Serious: Yes (Death)
  Sender: FDA-Public Use
  Company Number: None

PATIENT
  Age: 57 Year
  Sex: Male
  Weight: 77.1115 kg

DRUGS (3)
  1. DARVON [Suspect]
     Indication: EXOSTOSIS
     Dates: start: 20071001, end: 20080205
  2. DARVON [Suspect]
     Indication: MUSCULOSKELETAL PAIN
     Dates: start: 20071001, end: 20080205
  3. LIPITOR [Concomitant]

REACTIONS (5)
  - COMPLETED SUICIDE [None]
  - DAYDREAMING [None]
  - DEPRESSION [None]
  - INSOMNIA [None]
  - NIGHTMARE [None]
